FAERS Safety Report 4777490-8 (Version None)
Quarter: 2005Q3

REPORT INFORMATION
  Report Type: 
  Country: None (occurrence: None)
  Receive Date: 20050915
  Receipt Date: 20050901
  Transmission Date: 20060218
  Serious: Yes (Hospitalization)
  Sender: FDA-Public Use
  Company Number: US015918

PATIENT
  Sex: 0

DRUGS (1)
  1. GABITRIL [Suspect]
     Dates: start: 20050830, end: 20050830

REACTIONS (7)
  - AGITATION [None]
  - CONFUSIONAL STATE [None]
  - CONVULSION [None]
  - INTENTIONAL MISUSE [None]
  - OVERDOSE [None]
  - UNRESPONSIVE TO PAIN STIMULI [None]
  - UNRESPONSIVE TO VERBAL STIMULI [None]
